FAERS Safety Report 11933118 (Version 3)
Quarter: 2016Q1

REPORT INFORMATION
  Report Type: Spontaneous
  Country: JP (occurrence: JP)
  Receive Date: 20160121
  Receipt Date: 20160328
  Transmission Date: 20160526
  Serious: Yes (Death, Other)
  Sender: FDA-Public Use
  Company Number: JP-ROCHE-1697478

PATIENT
  Age: 12 Year
  Sex: Female

DRUGS (4)
  1. AVASTIN [Suspect]
     Active Substance: BEVACIZUMAB
     Indication: MALIGNANT GLIOMA
     Dosage: DOSAGE UNCERTAIN.
     Route: 041
  2. GLYCERIN. [Concomitant]
     Active Substance: GLYCERIN
     Indication: MALIGNANT GLIOMA
     Dosage: DOSAGE UNCERTAIN.
     Route: 065
  3. TEMODAL [Suspect]
     Active Substance: TEMOZOLOMIDE
     Indication: MALIGNANT GLIOMA
     Dosage: DOSAGE IS UNCERTAIN.
     Route: 065
  4. DEXAMETHASONE. [Concomitant]
     Active Substance: DEXAMETHASONE
     Indication: MALIGNANT GLIOMA
     Dosage: DOSAGE UNCERTAIN.
     Route: 065

REACTIONS (4)
  - Diffuse alveolar damage [Fatal]
  - Pneumonia cytomegaloviral [Fatal]
  - Histiocytosis haematophagic [Unknown]
  - Cytomegalovirus infection [Unknown]
